FAERS Safety Report 9316509 (Version 1)
Quarter: 2013Q2

REPORT INFORMATION
  Report Type: Report from Study
  Country: CA (occurrence: CA)
  Receive Date: 20130530
  Receipt Date: 20130530
  Transmission Date: 20140414
  Serious: Yes (Other)
  Sender: FDA-Public Use
  Company Number: CA-JNJFOC-20130515632

PATIENT
  Age: 35 Year
  Sex: Female
  Weight: 66.23 kg

DRUGS (8)
  1. REMICADE [Suspect]
     Indication: RHEUMATOID ARTHRITIS
     Dosage: FOURTH WEEK MARK FROM THE PREVIOUS INFUSION
     Route: 042
     Dates: start: 20130516
  2. REMICADE [Suspect]
     Indication: RHEUMATOID ARTHRITIS
     Route: 042
  3. REMICADE [Suspect]
     Indication: RHEUMATOID ARTHRITIS
     Dosage: FOURTH WEEK MARK FROM THE PREVIOUS INFUSION
     Route: 042
  4. REMICADE [Suspect]
     Indication: RHEUMATOID ARTHRITIS
     Dosage: FOURTH WEEK MARK FROM THE PREVIOUS INFUSION
     Route: 042
  5. REMICADE [Suspect]
     Indication: CROHN^S DISEASE
     Route: 042
  6. REMICADE [Suspect]
     Indication: CROHN^S DISEASE
     Dosage: FOURTH WEEK MARK FROM THE PREVIOUS INFUSION
     Route: 042
  7. REMICADE [Suspect]
     Indication: CROHN^S DISEASE
     Dosage: FOURTH WEEK MARK FROM THE PREVIOUS INFUSION
     Route: 042
  8. REMICADE [Suspect]
     Indication: CROHN^S DISEASE
     Dosage: FOURTH WEEK MARK FROM THE PREVIOUS INFUSION
     Route: 042
     Dates: start: 20130516

REACTIONS (4)
  - Vaginal fistula [Recovered/Resolved]
  - Crohn^s disease [Recovered/Resolved]
  - Weight decreased [Unknown]
  - Rheumatoid arthritis [Unknown]
